FAERS Safety Report 5134004-0 (Version None)
Quarter: 2006Q4

REPORT INFORMATION
  Report Type: 
  Country: None (occurrence: None)
  Receive Date: 20061019
  Receipt Date: 20061010
  Transmission Date: 20070319
  Serious: Yes (Death, Hospitalization)
  Sender: FDA-Public Use
  Company Number: 2006037838

PATIENT
  Age: 66 Year
  Sex: Male

DRUGS (10)
  1. PREDNISOLONE [Suspect]
     Indication: T-CELL LYMPHOMA
  2. CYCLOPHOSPHAMIDE [Suspect]
     Indication: T-CELL LYMPHOMA
  3. VINCRISTINE [Suspect]
     Indication: T-CELL LYMPHOMA
  4. RITUXIMAB [Suspect]
     Indication: T-CELL LYMPHOMA
  5. CISPLATIN [Suspect]
     Indication: DRUG USE FOR UNKNOWN INDICATION
  6. ETOPOSIDE [Concomitant]
  7. BLEOMYCIN [Concomitant]
  8. METHOTREXATE [Concomitant]
  9. GEMCITABINE [Concomitant]
  10. CHLORAMBUCIL [Concomitant]

REACTIONS (3)
  - CONDITION AGGRAVATED [None]
  - DRUG INEFFECTIVE [None]
  - LIVER DISORDER [None]
